FAERS Safety Report 20963331 (Version 1)
Quarter: 2022Q2

REPORT INFORMATION
  Report Type: Spontaneous
  Country: US (occurrence: US)
  Receive Date: 20220615
  Receipt Date: 20220615
  Transmission Date: 20220721
  Serious: Yes (Other)
  Sender: FDA-Public Use
  Company Number: US-BRISTOL-MYERS SQUIBB COMPANY-2022-053675

PATIENT
  Age: 59 Year
  Sex: Female
  Weight: 73.48 kg

DRUGS (6)
  1. ELIQUIS [Suspect]
     Active Substance: APIXABAN
     Indication: Thrombosis
     Dosage: DOSE : UNAVAILABLE;     FREQ : TWICE A DAY
     Route: 048
     Dates: start: 20220427
  2. ELIQUIS [Suspect]
     Active Substance: APIXABAN
     Route: 065
  3. CYCLODE [Concomitant]
     Indication: Product used for unknown indication
  4. ATIVAN [Concomitant]
     Active Substance: LORAZEPAM
     Indication: Stress
  5. UNSPECIFIED INGREDIENT [Concomitant]
     Active Substance: UNSPECIFIED INGREDIENT
     Indication: Brain neoplasm
  6. IBRANCE [Concomitant]
     Active Substance: PALBOCICLIB
     Indication: Product used for unknown indication

REACTIONS (5)
  - Rash pruritic [Unknown]
  - Nausea [Unknown]
  - Headache [Unknown]
  - Feeding disorder [Unknown]
  - Haematochezia [Unknown]
